FAERS Safety Report 17813756 (Version 1)
Quarter: 2020Q2

REPORT INFORMATION
  Report Type: Spontaneous
  Country: GB (occurrence: GB)
  Receive Date: 20200521
  Receipt Date: 20200521
  Transmission Date: 20200714
  Serious: Yes (Other)
  Sender: FDA-Public Use
  Company Number: NVSC2020GB139800

PATIENT
  Age: 40 Year

DRUGS (1)
  1. PARACETAMOL [Suspect]
     Active Substance: ACETAMINOPHEN
     Indication: PRODUCT USED FOR UNKNOWN INDICATION
     Dosage: 5 G, UNKNOWN
     Route: 042
     Dates: start: 20200111, end: 20200111

REACTIONS (2)
  - Acute hepatic failure [Unknown]
  - Product dispensing error [Unknown]
